FAERS Safety Report 12723284 (Version 1)
Quarter: 2016Q3

REPORT INFORMATION
  Report Type: Spontaneous
  Country: FR (occurrence: FR)
  Receive Date: 20160908
  Receipt Date: 20160908
  Transmission Date: 20161109
  Serious: Yes (Other)
  Sender: FDA-Public Use
  Company Number: FR-ACCORD-043646

PATIENT
  Age: 81 Year
  Sex: Female
  Weight: 42 kg

DRUGS (3)
  1. FOLINIC ACID [Concomitant]
     Active Substance: LEUCOVORIN
     Indication: OESOPHAGEAL SQUAMOUS CELL CARCINOMA
  2. OXALIPLATIN. [Suspect]
     Active Substance: OXALIPLATIN
     Indication: OESOPHAGEAL SQUAMOUS CELL CARCINOMA
     Dates: start: 20160606
  3. FLUOROURACIL ACCORD [Suspect]
     Active Substance: FLUOROURACIL
     Indication: OESOPHAGEAL SQUAMOUS CELL CARCINOMA
     Dosage: PLANNED DOSE OF 1200 MG/M^2, 3300 MG IN 48 HOURS (FIRST DAY EQUAL TO DAY 14)
     Route: 042
     Dates: start: 20160620, end: 20160621

REACTIONS (5)
  - Off label use [Unknown]
  - Erythema [Recovering/Resolving]
  - Swelling face [Recovered/Resolved]
  - Condition aggravated [Unknown]
  - Burning sensation [Unknown]

NARRATIVE: CASE EVENT DATE: 20160621
